FAERS Safety Report 21702655 (Version 2)
Quarter: 2022Q4

REPORT INFORMATION
  Report Type: Report from Study
  Country: US (occurrence: US)
  Receive Date: 20221209
  Receipt Date: 20221209
  Transmission Date: 20230112
  Serious: No
  Sender: FDA-Public Use
  Company Number: US-ABBVIE-4212841

PATIENT
  Sex: Female

DRUGS (2)
  1. SKYRIZI [Suspect]
     Active Substance: RISANKIZUMAB-RZAA
     Indication: Psoriasis
     Dates: end: 202203
  2. SKYRIZI [Suspect]
     Active Substance: RISANKIZUMAB-RZAA
     Indication: Psoriasis

REACTIONS (5)
  - Psoriasis [Not Recovered/Not Resolved]
  - Non-alcoholic fatty liver [Recovering/Resolving]
  - Pain [Recovering/Resolving]
  - Psoriatic arthropathy [Unknown]
  - Depression [Unknown]

NARRATIVE: CASE EVENT DATE: 20220101
